FAERS Safety Report 6506397-0 (Version None)
Quarter: 2009Q4

REPORT INFORMATION
  Report Type: 
  Country: None (occurrence: None)
  Receive Date: 20091218
  Receipt Date: 20091204
  Transmission Date: 20100525
  Serious: Yes (Hospitalization)
  Sender: FDA-Public Use
  Company Number: MW-B.I. PHARMACEUTICALS,INC./RIDGEFIELD-2009-DE-07517GD

PATIENT
  Age: 58 Year
  Sex: Female

DRUGS (1)
  1. TRIOMUNE [Suspect]
     Indication: HIV INFECTION
     Dosage: STAVUDINE (60 MG), LAMIVUDINE (300 MG), AND NEVIRAPINE (400 MG)
     Route: 048
     Dates: start: 20040101, end: 20080701

REACTIONS (7)
  - HYPERLACTACIDAEMIA [None]
  - HYPERLIPIDAEMIA [None]
  - LIPOATROPHY [None]
  - NEUROPATHY PERIPHERAL [None]
  - PRURITUS GENITAL [None]
  - TYPE 2 DIABETES MELLITUS [None]
  - WEIGHT DECREASED [None]
